FAERS Safety Report 7685907-4 (Version None)
Quarter: 2011Q3

REPORT INFORMATION
  Report Type: 
  Country: None (occurrence: None)
  Receive Date: 20110816
  Receipt Date: 20110812
  Transmission Date: 20111222
  Serious: Yes (Life-Threatening)
  Sender: FDA-Public Use
  Company Number: BR-ELI_LILLY_AND_COMPANY-BR201106002671

PATIENT
  Sex: Female
  Weight: 61.1 kg

DRUGS (9)
  1. HUMALOG [Suspect]
     Dosage: 15 IU, EACH MORNING
     Route: 065
     Dates: start: 20110531, end: 20110606
  2. HUMALOG [Suspect]
     Dosage: 6 IU, EACH EVENING
     Dates: start: 20110607
  3. HUMALOG [Suspect]
     Indication: TYPE 2 DIABETES MELLITUS
     Dosage: UNK, UNKNOWN
     Dates: start: 20110324
  4. HUMALOG [Suspect]
     Dosage: 8 IU, EACH EVENING
     Dates: start: 20110531, end: 20110606
  5. HUMALOG [Suspect]
     Dosage: 18 IU, OTHER
     Dates: start: 20110607
  6. HUMALOG [Suspect]
     Dosage: 12 IU, EACH MORNING
     Dates: start: 20110607
  7. ACETYLSALICYLIC ACID SRT [Concomitant]
     Indication: CARDIOVASCULAR EVENT PROPHYLAXIS
     Dosage: UNK, UNKNOWN
     Route: 065
     Dates: start: 20080101
  8. HUMALOG [Suspect]
     Dosage: 24 IU, OTHER
     Dates: start: 20110531, end: 20110606
  9. METFORMIN HCL [Concomitant]
     Indication: DIABETES MELLITUS
     Dosage: UNK
     Dates: start: 20000101

REACTIONS (2)
  - HYPOGLYCAEMIA [None]
  - LOSS OF CONSCIOUSNESS [None]
